FAERS Safety Report 10304695 (Version 2)
Quarter: 2014Q3

REPORT INFORMATION
  Report Type: Spontaneous
  Country: CN (occurrence: None)
  Receive Date: 20140710
  Receipt Date: 20140731
  Transmission Date: 20150326
  Serious: Yes (Other)
  Sender: FDA-Public Use
  Company Number: SYM-2014-22736

PATIENT
  Age: 61 Year
  Sex: Male

DRUGS (6)
  1. FLUOROURACIL (FLUOROURACIL) [Suspect]
     Active Substance: FLUOROURACIL
     Indication: HEPATIC CANCER METASTATIC
     Route: 040
     Dates: start: 20121205, end: 20130217
  2. ADEFOVIR DIPIVOXIL (ADEFOVIR DIPIVOXIL) [Concomitant]
  3. OXALIPLATIN (OXALIPLATIN) [Suspect]
     Active Substance: OXALIPLATIN
     Indication: HEPATIC CANCER METASTATIC
     Route: 041
     Dates: start: 20121205, end: 20130217
  4. LAMIVUDINE. [Concomitant]
     Active Substance: LAMIVUDINE
  5. CALCIUM FOLINATE [Suspect]
     Active Substance: LEUCOVORIN CALCIUM
     Indication: HEPATIC CANCER METASTATIC
     Route: 041
     Dates: start: 20121205, end: 20130217
  6. SORAFENIB [Concomitant]
     Active Substance: SORAFENIB

REACTIONS (3)
  - Off label use [None]
  - Therapy responder [None]
  - Hepatitis B [None]

NARRATIVE: CASE EVENT DATE: 20130217
